FAERS Safety Report 4532789-5 (Version None)
Quarter: 2004Q4

REPORT INFORMATION
  Report Type: 
  Country: None (occurrence: None)
  Receive Date: 20041220
  Receipt Date: 20041130
  Transmission Date: 20050328
  Serious: Yes (Hospitalization)
  Sender: FDA-Public Use
  Company Number: FR-YAMANOUCHI-YEHQ20040444

PATIENT
  Age: 18 Year
  Sex: Female

DRUGS (1)
  1. VESICARE [Suspect]
     Dosage: PO
     Route: 048

REACTIONS (1)
  - LOSS OF CONSCIOUSNESS [None]
